FAERS Safety Report 5352874-8 (Version None)
Quarter: 2007Q2

REPORT INFORMATION
  Report Type: 
  Country: None (occurrence: None)
  Receive Date: 20070611
  Receipt Date: 20070604
  Transmission Date: 20071010
  Serious: Yes (Death)
  Sender: FDA-Public Use
  Company Number: US-ELI_LILLY_AND_COMPANY-US_0412108999

PATIENT
  Age: 40 Year
  Sex: Male
  Weight: 86.167 kg

DRUGS (1)
  1. ZYPREXA [Suspect]
     Indication: SCHIZOPHRENIA
     Dosage: 15 MG, UNKNOWN
     Route: 048
     Dates: start: 19990101, end: 20011205

REACTIONS (5)
  - ACUTE MYOCARDIAL INFARCTION [None]
  - ASTHMA [None]
  - DIABETES MELLITUS [None]
  - HYPERTENSION [None]
  - WEIGHT INCREASED [None]
